FAERS Safety Report 21522121 (Version 1)
Quarter: 2022Q4

REPORT INFORMATION
  Report Type: Spontaneous
  Country: FR (occurrence: FR)
  Receive Date: 20221028
  Receipt Date: 20221028
  Transmission Date: 20230113
  Serious: Yes (Other)
  Sender: FDA-Public Use
  Company Number: None

PATIENT
  Age: 76 Year
  Sex: Female

DRUGS (3)
  1. PREDNISOLONE [Suspect]
     Active Substance: PREDNISOLONE
     Indication: Interstitial lung disease
     Dosage: UNIT DOSE: 50 MG , FREQUENCY TIME : 1 DAY, THERAPY END DATE : NASK
     Dates: start: 20220906
  2. SULFAMETHOXAZOLE [Suspect]
     Active Substance: SULFAMETHOXAZOLE
     Indication: Antibiotic prophylaxis
     Dosage: UNIT DOSE: 1 DF, FREQUENCY TIME : 2 DAYS, DURATION : 13 DAYS
     Dates: start: 20220913, end: 20220926
  3. TRIMETHOPRIM [Suspect]
     Active Substance: TRIMETHOPRIM
     Indication: Antibiotic prophylaxis
     Dosage: UNIT DOSE: 1 DF , FREQUENCY TIME : 2 DAYS, DURATION : 13 DAYS
     Dates: start: 20220913, end: 20220926

REACTIONS (1)
  - Thrombocytopenia [Not Recovered/Not Resolved]

NARRATIVE: CASE EVENT DATE: 20220922
